FAERS Safety Report 23116254 (Version 4)
Quarter: 2024Q2

REPORT INFORMATION
  Report Type: Spontaneous
  Country: PR (occurrence: PR)
  Receive Date: 20231027
  Receipt Date: 20240528
  Transmission Date: 20240716
  Serious: Yes (Life-Threatening, Other)
  Sender: FDA-Public Use
  Company Number: PR-PFIZER INC-PV202300176299

PATIENT
  Age: 70 Year
  Sex: Female

DRUGS (8)
  1. IBRANCE [Suspect]
     Active Substance: PALBOCICLIB
     Indication: Breast cancer female
     Dosage: 125 MG, CYCLIC (125 MG DAILY FOR 21 DAYS WITH 7 DAYS OF REST)
     Route: 048
     Dates: start: 20221118, end: 20240311
  2. LOSARTAN [Concomitant]
     Active Substance: LOSARTAN
     Indication: Hypertension
     Dosage: 100 MG
  3. LIPITOR [Concomitant]
     Active Substance: ATORVASTATIN CALCIUM
     Indication: Blood cholesterol increased
     Dosage: 20 MG
  4. ZOLPIDEM [Concomitant]
     Active Substance: ZOLPIDEM TARTRATE
     Dosage: 10 MG
  5. NABUMETONE [Concomitant]
     Active Substance: NABUMETONE
     Dosage: 500 MG
  6. IRON\VITAMIN B [Concomitant]
     Active Substance: IRON\VITAMIN B
     Dosage: UNK
  7. ZYRTEC [Concomitant]
     Active Substance: CETIRIZINE HYDROCHLORIDE
     Dosage: 10 MG
  8. FULVESTRANT [Concomitant]
     Active Substance: FULVESTRANT
     Dosage: 250MG/5ML INJ, 5ML

REACTIONS (4)
  - Platelet count decreased [Recovering/Resolving]
  - Thrombosis [Recovering/Resolving]
  - Neoplasm progression [Unknown]
  - Haemoglobin decreased [Recovering/Resolving]

NARRATIVE: CASE EVENT DATE: 20231020
